FAERS Safety Report 15496706 (Version 3)
Quarter: 2018Q4

REPORT INFORMATION
  Report Type: Spontaneous
  Country: TH (occurrence: TH)
  Receive Date: 20181014
  Receipt Date: 20181014
  Transmission Date: 20190205
  Serious: Yes (Hospitalization, Other)
  Sender: FDA-Public Use
  Company Number: PHHY2018TH118677

PATIENT
  Age: 38 Year
  Sex: Female

DRUGS (6)
  1. MESTINON [Concomitant]
     Active Substance: PYRIDOSTIGMINE BROMIDE
     Indication: MYASTHENIA GRAVIS
     Dosage: 240 MG, QD
     Route: 065
     Dates: start: 201509, end: 201510
  2. HYDROXYCHLOROQUINE [Suspect]
     Active Substance: HYDROXYCHLOROQUINE
     Indication: IMMUNOSUPPRESSANT DRUG THERAPY
     Dosage: 400 MG, QD
     Route: 065
     Dates: start: 2015
  3. PREDNISOLONE. [Suspect]
     Active Substance: PREDNISOLONE
     Indication: SYSTEMIC LUPUS ERYTHEMATOSUS
     Dosage: 5 MG, QD
     Route: 065
  4. AZATHIOPRINE. [Suspect]
     Active Substance: AZATHIOPRINE
     Indication: SYSTEMIC LUPUS ERYTHEMATOSUS
     Route: 065
     Dates: start: 2002
  5. CEFTRIAXONE. [Concomitant]
     Active Substance: CEFTRIAXONE
     Indication: ENTERITIS
     Route: 065
  6. PREDNISOLONE. [Suspect]
     Active Substance: PREDNISOLONE
     Indication: IMMUNOSUPPRESSANT DRUG THERAPY
     Dosage: 45 MG, QD
     Route: 065
     Dates: start: 2015

REACTIONS (13)
  - Leukopenia [Recovered/Resolved]
  - Lymphopenia [Recovered/Resolved]
  - Pain in extremity [Recovered/Resolved]
  - Skin plaque [Recovered/Resolved]
  - Legionella infection [Recovered/Resolved]
  - Neutrophilic panniculitis [Recovered/Resolved]
  - Lupus myocarditis [Recovered/Resolved]
  - Varicella zoster virus infection [Recovered/Resolved]
  - Eyelid ptosis [Recovered/Resolved]
  - Skin infection [Recovered/Resolved]
  - Soft tissue infection [Recovered/Resolved]
  - Cytomegalovirus syndrome [Recovered/Resolved]
  - Myositis [Recovered/Resolved]

NARRATIVE: CASE EVENT DATE: 201511
